FAERS Safety Report 4276661-7 (Version None)
Quarter: 2004Q1

REPORT INFORMATION
  Report Type: 
  Country: None (occurrence: None)
  Receive Date: 20040120
  Receipt Date: 20040109
  Transmission Date: 20041129
  Serious: Yes (Hospitalization)
  Sender: FDA-Public Use
  Company Number: 200410116FR

PATIENT
  Age: 22 Year
  Sex: Male
  Weight: 48 kg

DRUGS (3)
  1. CEFIXIME (OROKEN) FILM-COATED TABLETS [Suspect]
     Indication: ANAL ABSCESS
     Dosage: 400 MG/DAY PO
     Route: 048
     Dates: start: 20030920, end: 20031006
  2. OFLOXACIN (OFLOCET) TABLETS [Suspect]
     Indication: ANAL ABSCESS
     Dosage: 400 MG/DAY PO
     Route: 048
     Dates: start: 20030916, end: 20030920
  3. FLAGYL [Suspect]
     Indication: ANAL ABSCESS
     Dosage: 1 G/DAY PO
     Route: 048
     Dates: start: 20030916, end: 20031006

REACTIONS (1)
  - TENDONITIS [None]
